FAERS Safety Report 20369437 (Version 1)
Quarter: 2022Q1

REPORT INFORMATION
  Report Type: Spontaneous
  Country: FR (occurrence: FR)
  Receive Date: 20220124
  Receipt Date: 20220124
  Transmission Date: 20220424
  Serious: Yes (Hospitalization)
  Sender: FDA-Public Use
  Company Number: FR-EMA-DD-20190820-kumarsingh_a-131559

PATIENT
  Age: 61 Year
  Sex: Male
  Weight: 90 kg

DRUGS (11)
  1. BECLOMETHASONE DIPROPIONATE [Suspect]
     Active Substance: BECLOMETHASONE DIPROPIONATE
     Indication: Chronic obstructive pulmonary disease
     Dosage: 1 DOSAGE FORMS DAILY; 1 U, QD, FORM; SOLINH DOSE:1 UNIT(S)
     Route: 048
  2. HYDROQUINIDINE HYDROCHLORIDE [Suspect]
     Active Substance: HYDROQUINIDINE HYDROCHLORIDE
     Indication: Chronic obstructive pulmonary disease
     Dosage: 300 MILLIGRAM DAILY;  THERAPY START DATE: ASKU
     Route: 048
  3. HYDROQUINIDINE HYDROCHLORIDE [Suspect]
     Active Substance: HYDROQUINIDINE HYDROCHLORIDE
     Indication: Chronic obstructive pulmonary disease
     Dosage: 600 MG
     Route: 048
  4. THEOPHYLLINE ANHYDROUS [Suspect]
     Active Substance: THEOPHYLLINE ANHYDROUS
     Indication: Chronic obstructive pulmonary disease
     Dosage: FORM:UNKNOWN
     Route: 048
  5. TARKA [Suspect]
     Active Substance: TRANDOLAPRIL\VERAPAMIL HYDROCHLORIDE
     Indication: Chronic obstructive pulmonary disease
     Dosage: 1 DOSAGE FORMS DAILY; DOSE:1 UNIT(S), FORM:UNKNOWN
     Route: 048
  6. INNOVAIR [Suspect]
     Active Substance: BECLOMETHASONE DIPROPIONATE\FORMOTEROL
     Indication: Chronic obstructive pulmonary disease
     Dosage: 2 DOSAGE FORMS DAILY;
     Route: 048
  7. KARDEGIC [Concomitant]
     Active Substance: ASPIRIN DL-LYSINE
     Dosage: STRENGTH; 75 MG
  8. ALLOPURINOL [Concomitant]
     Active Substance: ALLOPURINOL
  9. BAMBUTEROL HYDROCHLORIDE [Concomitant]
     Active Substance: BAMBUTEROL HYDROCHLORIDE
     Dates: end: 2005
  10. POTASSIUM CHLORIDE [Concomitant]
     Active Substance: POTASSIUM CHLORIDE
  11. CALCIFEDIOL [Concomitant]
     Active Substance: CALCIFEDIOL

REACTIONS (4)
  - Myalgia [Unknown]
  - Muscle spasms [Unknown]
  - Arthralgia [Unknown]
  - Tremor [Unknown]

NARRATIVE: CASE EVENT DATE: 20050101
